FAERS Safety Report 5577625-3 (Version None)
Quarter: 2007Q4

REPORT INFORMATION
  Report Type: 
  Country: None (occurrence: None)
  Receive Date: 20071231
  Receipt Date: 20071221
  Transmission Date: 20080405
  Serious: Yes (Hospitalization)
  Sender: FDA-Public Use
  Company Number: PHBS2007JP19854

PATIENT
  Age: 16 Year
  Sex: Male
  Weight: 51 kg

DRUGS (9)
  1. CYCLOSPORINE [Suspect]
     Indication: NEPHROTIC SYNDROME
     Dosage: 4-5 MG/KG/DAY
     Route: 065
  2. CYCLOSPORINE [Suspect]
     Dosage: 150 MG/D
     Route: 065
  3. PREDNISOLONE [Concomitant]
     Indication: NEPHROTIC SYNDROME
     Route: 048
  4. PREDNISOLONE [Concomitant]
     Dosage: 20 MG/DAY EVERY OTHER DAY
  5. PREDNISOLONE [Concomitant]
     Dosage: 30 MG/D
     Route: 048
  6. METHYLPREDNISOLONE [Suspect]
     Indication: NEPHROTIC SYNDROME
     Dosage: 30 MG/KG, QMO
     Route: 042
  7. METHYLPREDNISOLONE [Suspect]
     Dosage: 1 G, QD
     Dates: start: 20050512
  8. MIZORIBINE [Concomitant]
     Indication: NEPHROTIC SYNDROME
     Dosage: 200 MG/D
  9. HEPARIN [Concomitant]
     Dosage: 8 U/KG/H

REACTIONS (14)
  - ABDOMINAL PAIN [None]
  - ANTITHROMBIN III DECREASED [None]
  - BLOOD ALBUMIN DECREASED [None]
  - BLOOD FIBRINOGEN INCREASED [None]
  - COLITIS ISCHAEMIC [None]
  - DIARRHOEA HAEMORRHAGIC [None]
  - FIBRIN D DIMER INCREASED [None]
  - NEPHROTIC SYNDROME [None]
  - OEDEMA PERIPHERAL [None]
  - OLIGURIA [None]
  - PLATELET COUNT INCREASED [None]
  - PROTEIN TOTAL DECREASED [None]
  - PROTEINURIA [None]
  - WEIGHT INCREASED [None]
